FAERS Safety Report 17360582 (Version 7)
Quarter: 2020Q2

REPORT INFORMATION
  Report Type: Spontaneous
  Country: PT (occurrence: PT)
  Receive Date: 20200203
  Receipt Date: 20200603
  Transmission Date: 20200713
  Serious: Yes (Other)
  Sender: FDA-Public Use
  Company Number: NVSC2020PT014076

PATIENT
  Age: 72 Year
  Sex: Male

DRUGS (4)
  1. POSACONAZOLE [Suspect]
     Active Substance: POSACONAZOLE
     Indication: KERATITIS FUNGAL
     Dosage: UNK
     Route: 048
  2. VORICONAZOLE. [Suspect]
     Active Substance: VORICONAZOLE
     Indication: HERPES OPHTHALMIC
  3. VORICONAZOLE. [Suspect]
     Active Substance: VORICONAZOLE
     Indication: ANTIFUNGAL TREATMENT
  4. VORICONAZOLE. [Suspect]
     Active Substance: VORICONAZOLE
     Indication: KERATITIS FUNGAL
     Dosage: UNK
     Route: 065

REACTIONS (4)
  - Hepatitis toxic [Recovered/Resolved]
  - Product use in unapproved indication [Unknown]
  - Encephalopathy [Recovering/Resolving]
  - Toxic encephalopathy [Recovering/Resolving]
